FAERS Safety Report 7657522-X (Version None)
Quarter: 2011Q3

REPORT INFORMATION
  Report Type: 
  Country: None (occurrence: None)
  Receive Date: 20110804
  Receipt Date: 20110727
  Transmission Date: 20111222
  Serious: Yes (Hospitalization, Other)
  Sender: FDA-Public Use
  Company Number: PHEH2006US01241

PATIENT
  Sex: Female
  Weight: 58.956 kg

DRUGS (33)
  1. TAMOXIFEN CITRATE [Concomitant]
     Indication: BREAST CANCER
     Dosage: 20 MG, QD
  2. PROTONIX [Concomitant]
  3. PRILOSEC [Concomitant]
     Dosage: 40 MG, DAILY
     Route: 048
  4. NAPROXEN [Concomitant]
     Dosage: 500 MG, BID
  5. MULTIPLE VITAMINS [Concomitant]
  6. TAXOTERE [Concomitant]
  7. METOCLOPRAMIDE [Concomitant]
     Dosage: 10 MG, DAILY
     Route: 048
  8. ASPIRIN [Concomitant]
  9. PLAQUENIL [Concomitant]
  10. VITAMIN D [Concomitant]
  11. FEMARA [Concomitant]
     Dosage: 2.5 MG, QD
  12. PERCOCET [Concomitant]
  13. CALCIUM ACETATE [Concomitant]
  14. CEFAZOLIN SODIUM [Concomitant]
  15. COUMADIN [Concomitant]
     Dosage: 1 MG, QD
  16. LORTAB [Concomitant]
  17. REGLAN [Concomitant]
  18. ONDANSERTRON HYDROCHLORIDE [Concomitant]
  19. AREDIA [Suspect]
     Indication: METASTASES TO BONE
     Dosage: UNK,UNK
     Route: 042
  20. ZOMETA [Suspect]
     Indication: METASTASES TO BONE
     Dosage: UNK,UNK
     Route: 042
     Dates: end: 20060208
  21. LASIX [Concomitant]
     Dosage: 40 MG, QD
  22. OXYCONTIN [Concomitant]
     Dosage: 10 MG, PRN
  23. METHOTREXATE [Concomitant]
  24. LISINOPRIL [Concomitant]
  25. TEMAZEPAM [Concomitant]
  26. FERROUS SULFATE TAB [Concomitant]
  27. BENADRYL ^PFIZER WARNER-LAMBERT^ [Concomitant]
  28. MORPHINE SULFATE [Concomitant]
  29. PRINIVIL [Concomitant]
     Dosage: 20 MG, QD
  30. HYDROXYCHLOROQUINE SULFATE [Concomitant]
  31. CENTRUM SILVER [Concomitant]
  32. ZANTAC [Concomitant]
  33. LOVENOX [Concomitant]

REACTIONS (57)
  - OSTEONECROSIS OF JAW [None]
  - ARTERIOSCLEROSIS CORONARY ARTERY [None]
  - OSTEOARTHRITIS [None]
  - URINARY TRACT INFECTION [None]
  - BUNDLE BRANCH BLOCK RIGHT [None]
  - FRACTURE [None]
  - HYPERLIPIDAEMIA [None]
  - RENAL CYST [None]
  - ORAL PAIN [None]
  - PYELONEPHRITIS [None]
  - LIGAMENT SPRAIN [None]
  - PRIMARY SEQUESTRUM [None]
  - OSTEOMYELITIS [None]
  - ELECTROCARDIOGRAM ABNORMAL [None]
  - ELECTROCARDIOGRAM ST SEGMENT DEPRESSION [None]
  - CONSTIPATION [None]
  - ANAEMIA [None]
  - FATIGUE [None]
  - HYPONATRAEMIA [None]
  - TOOTH ABSCESS [None]
  - FEMUR FRACTURE [None]
  - ARTERIAL STENOSIS [None]
  - IRRITABLE BOWEL SYNDROME [None]
  - BREAST NECROSIS [None]
  - JOINT STIFFNESS [None]
  - INFECTED DERMAL CYST [None]
  - ANAEMIA POSTOPERATIVE [None]
  - DIVERTICULUM [None]
  - MOBILITY DECREASED [None]
  - NAUSEA [None]
  - MYALGIA [None]
  - CERUMEN IMPACTION [None]
  - PERIODONTITIS [None]
  - MYOCARDIAL INFARCTION [None]
  - FALL [None]
  - OSTEOPOROSIS [None]
  - SCAR [None]
  - INTERVERTEBRAL DISC DEGENERATION [None]
  - RHEUMATOID ARTHRITIS [None]
  - URINARY RETENTION [None]
  - HIP FRACTURE [None]
  - VOMITING [None]
  - BONE DISORDER [None]
  - SENSITIVITY OF TEETH [None]
  - RIB FRACTURE [None]
  - STRESS URINARY INCONTINENCE [None]
  - ERYTHEMA [None]
  - JOINT SWELLING [None]
  - COMMINUTED FRACTURE [None]
  - PERIODONTAL DISEASE [None]
  - SINUSITIS [None]
  - ARTHRALGIA [None]
  - PERINEURIAL CYST [None]
  - PEPTIC ULCER HAEMORRHAGE [None]
  - METASTASES TO BONE [None]
  - CHONDROPATHY [None]
  - HYPOGLYCAEMIA [None]
